FAERS Safety Report 9373959 (Version 1)
Quarter: 2013Q2

REPORT INFORMATION
  Report Type: Spontaneous
  Country: US (occurrence: US)
  Receive Date: 20130628
  Receipt Date: 20130628
  Transmission Date: 20140414
  Serious: No
  Sender: FDA-Public Use
  Company Number: US-009507513-1306USA008664

PATIENT
  Age: 33 Year
  Sex: Female
  Weight: 81.63 kg

DRUGS (2)
  1. NUVARING [Suspect]
     Indication: CONTRACEPTION
     Dosage: 3 WEEKS IN, 1 WEEK OUT
     Route: 067
     Dates: start: 201302
  2. TRAZODONE HYDROCHLORIDE [Concomitant]

REACTIONS (2)
  - Vaginal haemorrhage [Not Recovered/Not Resolved]
  - Breast tenderness [Not Recovered/Not Resolved]
